FAERS Safety Report 9563448 (Version 1)
Quarter: 2013Q3

REPORT INFORMATION
  Report Type: Spontaneous
  Country: BR (occurrence: None)
  Receive Date: 20130926
  Receipt Date: 20130926
  Transmission Date: 20140515
  Serious: Yes (Hospitalization)
  Sender: FDA-Public Use
  Company Number: DSJ-2013-18213

PATIENT
  Age: 64 Year
  Sex: Female
  Weight: 82 kg

DRUGS (5)
  1. BENICAR ANLO [Suspect]
     Indication: HYPERTENSION
     Route: 048
     Dates: start: 201305, end: 20130728
  2. METHYLDOPA [Suspect]
     Indication: HYPERTENSION
     Route: 048
     Dates: start: 201305, end: 201308
  3. NPH INSULIN (INSULIN INJECTION, ISOPHANE) (INSULIN INJECTION, ISOPHANE) [Concomitant]
  4. REGULAR INSULIN (INSULIN) (INSULIN) [Concomitant]
  5. METFORMIN (METFORMIN) (METFORMIN) [Concomitant]

REACTIONS (4)
  - Drug ineffective [None]
  - Arteriosclerosis [None]
  - Overdose [None]
  - Insomnia [None]
